FAERS Safety Report 15602039 (Version 2)
Quarter: 2018Q4

REPORT INFORMATION
  Report Type: Spontaneous
  Country: LT (occurrence: LT)
  Receive Date: 20181109
  Receipt Date: 20181115
  Transmission Date: 20190205
  Serious: Yes (Death, Life-Threatening, Hospitalization, Other)
  Sender: FDA-Public Use
  Company Number: LT-PFIZER INC-2018457101

PATIENT
  Age: 78 Year
  Sex: Male
  Weight: 70 kg

DRUGS (13)
  1. METHYLPREDNISOLONE. [Concomitant]
     Active Substance: METHYLPREDNISOLONE
     Indication: INTERSTITIAL LUNG DISEASE
     Dosage: UNK
     Dates: start: 20171222, end: 20180104
  2. CEFUROXIME. [Concomitant]
     Active Substance: CEFUROXIME
     Indication: INFECTION
     Dosage: UNK
     Dates: start: 20171222, end: 20171229
  3. ISONIAZID. [Concomitant]
     Active Substance: ISONIAZID
     Indication: TUBERCULOSIS
     Dosage: UNK
     Dates: start: 20180118, end: 20180518
  4. SULTAMICILLIN [Concomitant]
     Active Substance: SULTAMICILLIN
     Indication: INFECTION
     Dosage: UNK
     Dates: start: 201712, end: 20180104
  5. RIVAROXABAN [Concomitant]
     Active Substance: RIVAROXABAN
     Indication: THROMBOSIS PROPHYLAXIS
     Dosage: UNK
     Dates: start: 201707
  6. DEXAMETHASONE. [Concomitant]
     Active Substance: DEXAMETHASONE
     Indication: INTERSTITIAL LUNG DISEASE
     Dosage: UNK
     Dates: start: 20180104
  7. CORDARONE [Suspect]
     Active Substance: AMIODARONE HYDROCHLORIDE
     Indication: SINUS RHYTHM
     Dosage: 2 DF, DAILY (TWO TABLETS A DAY)
     Route: 048
     Dates: start: 2002, end: 20171231
  8. PIPERACILLIN/TAZOBACTAM [Concomitant]
     Active Substance: PIPERACILLIN SODIUM\TAZOBACTAM SODIUM
     Indication: INFECTION
     Dosage: UNK
     Dates: start: 20180104, end: 20180118
  9. MEROPENEM. [Concomitant]
     Active Substance: MEROPENEM
     Indication: SEPSIS
     Dosage: UNK
     Dates: start: 20180518, end: 20180622
  10. PYRAZINAMIDE. [Concomitant]
     Active Substance: PYRAZINAMIDE
     Indication: TUBERCULOSIS
     Dosage: UNK
     Dates: start: 20180118, end: 20180518
  11. ETHAMBUTOL [Concomitant]
     Active Substance: ETHAMBUTOL HYDROCHLORIDE
     Indication: TUBERCULOSIS
     Dosage: UNK
     Dates: start: 20180118, end: 20180518
  12. RIFAMPICIN [Concomitant]
     Active Substance: RIFAMPIN
     Indication: TUBERCULOSIS
     Dosage: UNK
     Dates: start: 20180118, end: 20180518
  13. MEROPENEM. [Concomitant]
     Active Substance: MEROPENEM
     Indication: PNEUMONIA

REACTIONS (12)
  - Septic shock [Fatal]
  - Lung disorder [Fatal]
  - Tuberculosis [Fatal]
  - Respiratory failure [Fatal]
  - Drug abuse [Unknown]
  - Dyspnoea [Fatal]
  - Asthenia [Fatal]
  - Chest discomfort [Fatal]
  - Sepsis [Fatal]
  - Pneumonia [Fatal]
  - Atrial fibrillation [Fatal]
  - Pyrexia [Fatal]

NARRATIVE: CASE EVENT DATE: 20170522
